FAERS Safety Report 19472825 (Version 1)
Quarter: 2021Q2

REPORT INFORMATION
  Report Type: Spontaneous
  Country: SK (occurrence: SK)
  Receive Date: 20210629
  Receipt Date: 20210629
  Transmission Date: 20210717
  Serious: Yes (Other)
  Sender: FDA-Public Use
  Company Number: SK-BAYER-2021-164166

PATIENT
  Age: 43 Year
  Sex: Female

DRUGS (2)
  1. MIRENA [Suspect]
     Active Substance: LEVONORGESTREL
     Indication: HEAVY MENSTRUAL BLEEDING
     Dosage: 20 ?G PER DAY, CONTINUOUSLY
     Route: 015
     Dates: start: 202007, end: 20210616
  2. MIRENA [Suspect]
     Active Substance: LEVONORGESTREL
     Indication: ANAEMIA

REACTIONS (7)
  - Blood loss anaemia [None]
  - Abnormal uterine bleeding [None]
  - Device intolerance [None]
  - Drug ineffective [None]
  - Discomfort [None]
  - Headache [None]
  - Asthenia [None]
